FAERS Safety Report 14745592 (Version 1)
Quarter: 2018Q2

REPORT INFORMATION
  Report Type: Spontaneous
  Country: US (occurrence: US)
  Receive Date: 20180405
  Receipt Date: 20180405
  Transmission Date: 20180711
  Serious: Yes (Hospitalization)
  Sender: FDA-Public Use
  Company Number: None

PATIENT
  Age: 4 Year
  Sex: Female
  Weight: 17.1 kg

DRUGS (1)
  1. MIRALAX [Suspect]
     Active Substance: POLYETHYLENE GLYCOL 3350
     Indication: GASTROINTESTINAL MOTILITY DISORDER
     Dosage: ?          QUANTITY:1 CAPFUL;?
     Route: 048
     Dates: start: 20180326, end: 20180404

REACTIONS (5)
  - Anger [None]
  - Aggression [None]
  - Tic [None]
  - Mood swings [None]
  - Feeling abnormal [None]

NARRATIVE: CASE EVENT DATE: 20180403
